FAERS Safety Report 25078405 (Version 1)
Quarter: 2025Q1

REPORT INFORMATION
  Report Type: Spontaneous
  Country: IT (occurrence: IT)
  Receive Date: 20250314
  Receipt Date: 20250314
  Transmission Date: 20250408
  Serious: Yes (Other)
  Sender: BAYER HEALTHCARE PHARMACEUTICALS INC.
  Company Number: IT-MLMSERVICE-20250228-PI432855-00138-1

PATIENT
  Age: 33 Year
  Sex: Female

DRUGS (1)
  1. DIENOGEST\ESTRADIOL VALERATE [Suspect]
     Active Substance: DIENOGEST\ESTRADIOL VALERATE
     Indication: Endometriosis
     Route: 048

REACTIONS (3)
  - Central serous chorioretinopathy [Recovered/Resolved]
  - Product use in unapproved indication [None]
  - Product prescribing issue [None]
